FAERS Safety Report 12719911 (Version 1)
Quarter: 2016Q3

REPORT INFORMATION
  Report Type: Spontaneous
  Country: US (occurrence: US)
  Receive Date: 20160907
  Receipt Date: 20160907
  Transmission Date: 20161109
  Serious: Yes (Death)
  Sender: FDA-Public Use
  Company Number: US-JNJCP-30000352048

PATIENT
  Sex: Female

DRUGS (2)
  1. SHOWER TO SHOWER TALCUM POWDER [Suspect]
     Active Substance: TALC
     Indication: PRODUCT USED FOR UNKNOWN INDICATION
     Dosage: DAILY FOR OVER TEN YEARS
     Route: 061
  2. JOHNSONS PRODUCTS [Suspect]
     Active Substance: UNSPECIFIED INGREDIENT
     Indication: PRODUCT USED FOR UNKNOWN INDICATION
     Dosage: DAILY FOR OVER TEN YEARS
     Route: 061

REACTIONS (1)
  - Death [Fatal]
